FAERS Safety Report 19083422 (Version 1)
Quarter: 2021Q2

REPORT INFORMATION
  Report Type: Spontaneous
  Country: US (occurrence: US)
  Receive Date: 20210401
  Receipt Date: 20210401
  Transmission Date: 20210717
  Serious: No
  Sender: FDA-Public Use
  Company Number: US-BIOVITRUM-2021US3066

PATIENT
  Age: 6 Month
  Sex: Male
  Weight: 9 kg

DRUGS (4)
  1. FLOVENT DISKUS [Concomitant]
     Active Substance: FLUTICASONE PROPIONATE
     Dosage: 100 MCG BLST W/DEV
  2. VITAMIN D [Concomitant]
     Active Substance: VITAMIN D NOS
     Dosage: 400
  3. ALBUTEROL SULFATE. [Concomitant]
     Active Substance: ALBUTEROL SULFATE
  4. SYNAGIS [Suspect]
     Active Substance: PALIVIZUMAB
     Indication: RESPIRATORY SYNCYTIAL VIRUS INFECTION
     Route: 030
     Dates: start: 202010

REACTIONS (3)
  - Bronchial hyperreactivity [Unknown]
  - Wheezing [Unknown]
  - Inappropriate schedule of product administration [Unknown]

NARRATIVE: CASE EVENT DATE: 202101
